FAERS Safety Report 18397315 (Version 4)
Quarter: 2022Q3

REPORT INFORMATION
  Report Type: Report from Study
  Country: JP (occurrence: JP)
  Receive Date: 20201019
  Receipt Date: 20220722
  Transmission Date: 20221027
  Serious: Yes (Other)
  Sender: FDA-Public Use
  Company Number: JP-GSKJP-JP2020JPN174724AA

PATIENT

DRUGS (7)
  1. BOTULINUM TOXIN TYPE A [Suspect]
     Active Substance: BOTULINUM TOXIN TYPE A
     Indication: Hypertonic bladder
     Dosage: 100 IU, SINGLE
     Route: 030
     Dates: start: 20200819, end: 20200819
  2. DUTASTERIDE [Concomitant]
     Active Substance: DUTASTERIDE
     Indication: Benign prostatic hyperplasia
     Dosage: 0.5 MG, 1D
     Route: 048
     Dates: start: 20180912, end: 20200610
  3. BEOVA [Concomitant]
     Dosage: 50 UG, 1D
     Route: 048
     Dates: start: 20190911, end: 20200610
  4. SILODOSIN [Concomitant]
     Active Substance: SILODOSIN
     Indication: Benign prostatic hyperplasia
     Dosage: 8 MG, 1D
     Route: 048
     Dates: start: 20160118
  5. BETANIS TABLETS [Concomitant]
     Indication: Hypertonic bladder
     Dosage: 50 MG, 1D
     Route: 048
     Dates: start: 20160118, end: 20170501
  6. VESICARE [Concomitant]
     Active Substance: SOLIFENACIN SUCCINATE
     Indication: Hypertonic bladder
     Dosage: 5 MG, 1D
     Route: 048
     Dates: start: 20180124, end: 20180328
  7. HERBALS [Concomitant]
     Active Substance: HERBALS
     Indication: Benign prostatic hyperplasia
     Dosage: 7.5 G, 1D
     Route: 048
     Dates: start: 20180328

REACTIONS (2)
  - Urinary retention [Recovered/Resolved]
  - Cystitis [Recovered/Resolved]

NARRATIVE: CASE EVENT DATE: 20200822
